FAERS Safety Report 5269810-5 (Version None)
Quarter: 2007Q1

REPORT INFORMATION
  Report Type: 
  Country: None (occurrence: None)
  Receive Date: 20070314
  Receipt Date: 20070308
  Transmission Date: 20070707
  Serious: Yes (Death, Other)
  Sender: FDA-Public Use
  Company Number: TCI2006A00059

PATIENT
  Age: 63 Year
  Sex: Female

DRUGS (12)
  1. ACTOS [Suspect]
     Indication: INSULIN-REQUIRING TYPE II DIABETES MELLITUS
     Dosage: 15 MG (15 MG, 1 IN 1 D) PER ORAL
     Route: 048
     Dates: start: 20041112, end: 20060115
  2. GLUFAST (MITIGLINIDE CALCIUM HYDRATE) [Suspect]
     Indication: INSULIN-REQUIRING TYPE II DIABETES MELLITUS
     Dosage: 30 MG (10 MG, 3 IN 1 D) PER ORAL
     Route: 048
     Dates: start: 20051117, end: 20051228
  3. DIOVAN [Suspect]
     Indication: HYPERTENSION
     Dosage: 80 MG (80 MG, 1 IN 1 D) PER ORAL
     Route: 048
     Dates: start: 20021129, end: 20060115
  4. SIMVASTATIN [Suspect]
     Indication: HYPERLIPIDAEMIA
     Dosage: 2.5 MG (2.5 MG, 1 IN 1 D) PER ORAL
     Route: 048
     Dates: start: 19980407, end: 20051214
  5. LOXONIN (LOXOPROFEN SODIUM) [Suspect]
     Indication: BACK PAIN
     Dosage: 60 MG, AS REQUIRED PER ORAL
     Route: 048
     Dates: start: 20051203, end: 20060115
  6. MUCOSTA (REBAMIPIDE) [Suspect]
     Indication: GASTRITIS PROPHYLAXIS
     Dosage: 100 MG, AS REQUIRED PER ORAL
     Route: 048
     Dates: start: 20051203, end: 20060115
  7. MYONAL (EPERISONE HYDROCHLORIDE) [Suspect]
     Indication: BACK PAIN
     Dosage: 50 MG, AS REQUIRED PER ORAL
     Route: 048
     Dates: start: 20051203, end: 20060115
  8. ZOLPIDEM TARTRATE [Suspect]
     Indication: INSOMNIA
     Dosage: 5 MG, AS REQUIRED PER ORAL
     Route: 048
     Dates: start: 20050520
  9. VOLTAREN SUPPO (DICLOFENAC SODIUM) [Concomitant]
  10. HYOSCINE HBR HYT [Concomitant]
  11. FERRISELTZ [Concomitant]
  12. IOPAMIDOL [Concomitant]

REACTIONS (10)
  - DIARRHOEA [None]
  - GAIT DISTURBANCE [None]
  - MALIGNANT ASCITES [None]
  - METASTASES TO KIDNEY [None]
  - METASTASES TO LIVER [None]
  - METASTASES TO LUNG [None]
  - METASTASES TO LYMPH NODES [None]
  - PANCREATIC CARCINOMA METASTATIC [None]
  - PLEURAL EFFUSION [None]
  - PYELONEPHRITIS [None]
